FAERS Safety Report 5082395-1 (Version None)
Quarter: 2006Q3

REPORT INFORMATION
  Report Type: 
  Country: None (occurrence: None)
  Receive Date: 20060817
  Receipt Date: 20060602
  Transmission Date: 20061208
  Serious: Yes (Other)
  Sender: FDA-Public Use
  Company Number: US-GLAXOSMITHKLINE-A0607744A

PATIENT
  Age: 79 Year
  Sex: Female

DRUGS (2)
  1. VALTREX [Suspect]
     Dosage: 1000MG THREE TIMES PER DAY
     Route: 048
     Dates: start: 20060530, end: 20060531
  2. NO CONCURRENT MEDICATION [Concomitant]

REACTIONS (14)
  - BALANCE DISORDER [None]
  - DEHYDRATION [None]
  - DRUG INEFFECTIVE [None]
  - DRY MOUTH [None]
  - FALL [None]
  - GASTRIC DISORDER [None]
  - HERPES ZOSTER [None]
  - INSOMNIA [None]
  - LIMB INJURY [None]
  - LOSS OF CONSCIOUSNESS [None]
  - LOWER LIMB FRACTURE [None]
  - NAUSEA [None]
  - ORAL INTAKE REDUCED [None]
  - VOMITING [None]
